FAERS Safety Report 18821102 (Version 1)
Quarter: 2021Q1

REPORT INFORMATION
  Report Type: Spontaneous
  Country: US (occurrence: US)
  Receive Date: 20210202
  Receipt Date: 20210202
  Transmission Date: 20210419
  Serious: Yes (Other)
  Sender: FDA-Public Use
  Company Number: None

PATIENT
  Age: 35 Year
  Sex: Male
  Weight: 65.25 kg

DRUGS (1)
  1. SECUADO [Suspect]
     Active Substance: ASENAPINE
     Indication: SCHIZOPHRENIA
     Route: 062

REACTIONS (4)
  - Self-injurious ideation [None]
  - Chest pain [None]
  - Memory impairment [None]
  - Psychotic disorder [None]

NARRATIVE: CASE EVENT DATE: 20210201
